FAERS Safety Report 5072764-8 (Version None)
Quarter: 2006Q3

REPORT INFORMATION
  Report Type: 
  Country: None (occurrence: None)
  Receive Date: 20060807
  Receipt Date: 20060727
  Transmission Date: 20061208
  Serious: Yes (Death, Other)
  Sender: FDA-Public Use
  Company Number: PHBS2006FR11273

PATIENT
  Age: 57 Year
  Sex: Male

DRUGS (3)
  1. CYCLOSPORINE [Suspect]
     Indication: LUNG TRANSPLANT
     Route: 048
     Dates: start: 20040501
  2. AZATHIOPRINE [Suspect]
     Indication: LUNG TRANSPLANT
     Dosage: 2 MG/KG/D
  3. CORTICOSTEROIDS [Concomitant]
     Indication: LUNG TRANSPLANT
     Dosage: 0.5 MG/KG/D

REACTIONS (18)
  - ACUTE RESPIRATORY DISTRESS SYNDROME [None]
  - ANAEMIA [None]
  - ANURIA [None]
  - BLOOD CREATININE INCREASED [None]
  - COMPLICATIONS OF TRANSPLANTED LUNG [None]
  - HAEMODIALYSIS [None]
  - HAEMOPTYSIS [None]
  - HAPTOGLOBIN DECREASED [None]
  - MULTI-ORGAN FAILURE [None]
  - OLIGURIA [None]
  - PULMONARY ALVEOLAR HAEMORRHAGE [None]
  - RED BLOOD CELL SCHISTOCYTES PRESENT [None]
  - RENAL FAILURE ACUTE [None]
  - RESPIRATORY GAS EXCHANGE DISORDER [None]
  - RETICULOCYTE COUNT INCREASED [None]
  - THROMBOCYTOPENIA [None]
  - THROMBOTIC MICROANGIOPATHY [None]
  - VON WILLEBRAND'S DISEASE [None]
